FAERS Safety Report 6408862-3 (Version None)
Quarter: 2009Q4

REPORT INFORMATION
  Report Type: 
  Country: None (occurrence: None)
  Receive Date: 20091019
  Receipt Date: 20091008
  Transmission Date: 20100525
  Serious: Yes (Hospitalization)
  Sender: FDA-Public Use
  Company Number: 09-001615

PATIENT
  Age: 35 Year
  Sex: Female
  Weight: 113.4 kg

DRUGS (2)
  1. LOESTRIN 24 FE [Suspect]
     Indication: MENSTRUATION IRREGULAR
     Dosage: 20/1000 UG, QD, ORAL
     Route: 048
     Dates: start: 20090401, end: 20090612
  2. ASPIRIN [Concomitant]

REACTIONS (2)
  - BACK PAIN [None]
  - PULMONARY EMBOLISM [None]
